FAERS Safety Report 21487985 (Version 2)
Quarter: 2022Q4

REPORT INFORMATION
  Report Type: Spontaneous
  Country: US (occurrence: US)
  Receive Date: 20221020
  Receipt Date: 20221106
  Transmission Date: 20230112
  Serious: No
  Sender: FDA-Public Use
  Company Number: US-ALKERMES INC.-ALK-2022-004798

PATIENT
  Age: 41 Year
  Sex: Male

DRUGS (4)
  1. VIVITROL [Suspect]
     Active Substance: NALTREXONE
     Indication: Alcoholism
     Dosage: 380 MILLIGRAM, QMO
     Route: 030
     Dates: start: 20211116
  2. VIVITROL [Suspect]
     Active Substance: NALTREXONE
     Dosage: 380 MILLIGRAM, QMO
     Route: 030
     Dates: start: 20211116
  3. UNSPECIFIED INGREDIENT [Concomitant]
     Active Substance: UNSPECIFIED INGREDIENT
     Indication: Depression
  4. DEPAKOTE [Concomitant]
     Active Substance: DIVALPROEX SODIUM
     Indication: Alcohol use disorder
     Dosage: 250 MILLIGRAM, BID
     Route: 048
     Dates: start: 20220819

REACTIONS (3)
  - Wrong technique in product usage process [Recovered/Resolved]
  - Needle issue [Recovered/Resolved]
  - Product quality issue [Recovered/Resolved]

NARRATIVE: CASE EVENT DATE: 20220830
